FAERS Safety Report 6783965-2 (Version None)
Quarter: 2010Q2

REPORT INFORMATION
  Report Type: 
  Country: None (occurrence: None)
  Receive Date: 20100622
  Receipt Date: 20090819
  Transmission Date: 20101027
  Serious: No
  Sender: FDA-Public Use
  Company Number: US-BRISTOL-MYERS SQUIBB COMPANY-14764443

PATIENT
  Sex: Male

DRUGS (2)
  1. SINEMET [Suspect]
     Indication: RESTLESS LEGS SYNDROME
     Dosage: 1 DF - 25/100MG QHS AND 50/200QHS; INCREASED UPTO 2 TABS IN EVENING;
  2. SINEMET [Suspect]
     Indication: PERIODIC LIMB MOVEMENT DISORDER
     Dosage: 1 DF - 25/100MG QHS AND 50/200QHS; INCREASED UPTO 2 TABS IN EVENING;

REACTIONS (1)
  - DRUG INEFFECTIVE [None]
